FAERS Safety Report 14382571 (Version 2)
Quarter: 2018Q4

REPORT INFORMATION
  Report Type: Report from Study
  Country: US (occurrence: US)
  Receive Date: 20180112
  Receipt Date: 20181102
  Transmission Date: 20190204
  Serious: Yes (Hospitalization)
  Sender: FDA-Public Use
  Company Number: US-ACTELION-A-NJ2015-124955

PATIENT
  Age: 68 Year
  Sex: Male
  Weight: 87.75 kg

DRUGS (4)
  1. COUMADIN [Concomitant]
     Active Substance: WARFARIN SODIUM
  2. OPSUMIT [Suspect]
     Active Substance: MACITENTAN
     Indication: PULMONARY ARTERIAL HYPERTENSION
     Dosage: 10 MG, QD
     Route: 048
     Dates: start: 20150827
  3. SOLU-MEDROL [Concomitant]
     Active Substance: METHYLPREDNISOLONE SODIUM SUCCINATE
  4. SILDENAFIL. [Concomitant]
     Active Substance: SILDENAFIL

REACTIONS (12)
  - Arthritis [Unknown]
  - Weight increased [Not Recovered/Not Resolved]
  - Fall [Unknown]
  - Balance disorder [Unknown]
  - Asthma [Unknown]
  - Bronchitis [Unknown]
  - Body height decreased [Not Recovered/Not Resolved]
  - Intervertebral disc degeneration [Not Recovered/Not Resolved]
  - Pneumonia [Unknown]
  - Muscle spasms [Unknown]
  - Dyspnoea [Unknown]
  - Concussion [Unknown]
